FAERS Safety Report 6794689-X (Version None)
Quarter: 2010Q2

REPORT INFORMATION
  Report Type: 
  Country: None (occurrence: None)
  Receive Date: 20100625
  Receipt Date: 20100611
  Transmission Date: 20101027
  Serious: Yes (Hospitalization, Other)
  Sender: FDA-Public Use
  Company Number: US-BAYER-201010699NA

PATIENT
  Age: 19 Year
  Sex: Female
  Weight: 77 kg

DRUGS (25)
  1. YASMIN [Suspect]
     Indication: DRUG USE FOR UNKNOWN INDICATION
     Route: 048
     Dates: start: 20060601
  2. YAZ [Suspect]
     Indication: MENSTRUATION IRREGULAR
     Route: 048
     Dates: start: 20060701, end: 20091101
  3. VICODIN [Concomitant]
  4. ADVAIR DISKUS 100/50 [Concomitant]
  5. DIURETICS [Concomitant]
  6. AZITHROMYCIN [Concomitant]
  7. CHERATUSSIN [Concomitant]
  8. CELEBREX [Concomitant]
  9. HYDROCODONE [Concomitant]
  10. LIDOCAINE VISCOUS SOLN [Concomitant]
  11. FAMOTIDINE [Concomitant]
  12. ONDANSETRON [Concomitant]
  13. CLARINEX [Concomitant]
  14. RESPAIRE [Concomitant]
  15. PREDNISONE [Concomitant]
  16. ALBUTEROL [Concomitant]
  17. CEPHALEXIN PANTOPRAZOLE [Concomitant]
  18. KETOROLAC TROMETHAMINE [Concomitant]
  19. SINGULAIR [Concomitant]
  20. ROPOXY-N/APAP [Concomitant]
  21. IBUPROFEN [Concomitant]
  22. TYLENOL W/ CODEINE [Concomitant]
  23. PROAIR HFA [Concomitant]
  24. AMOXICILLIN [Concomitant]
  25. PANTOPRAZOLE [Concomitant]

REACTIONS (5)
  - ABDOMINAL PAIN UPPER [None]
  - ANXIETY [None]
  - CHOLECYSTITIS CHRONIC [None]
  - NAUSEA [None]
  - VOMITING [None]
